FAERS Safety Report 7111323-X (Version None)
Quarter: 2010Q4

REPORT INFORMATION
  Report Type: 
  Country: None (occurrence: None)
  Receive Date: 20101118
  Receipt Date: 20101105
  Transmission Date: 20110411
  Serious: Yes (Hospitalization)
  Sender: FDA-Public Use
  Company Number: PHHY2010CA44540

PATIENT
  Sex: Male

DRUGS (7)
  1. EXJADE [Suspect]
     Indication: MYELODYSPLASTIC SYNDROME
     Dosage: 2000 MG, QD
     Route: 048
     Dates: start: 20100511, end: 20100911
  2. EXJADE [Suspect]
     Dosage: 06 PILLS A DAY
  3. ANTIBIOTICS [Concomitant]
     Route: 042
  4. SPIRIVA [Concomitant]
     Indication: ASTHMA
  5. BLOOD PRESSURE PILLS [Concomitant]
  6. ABREVA [Concomitant]
     Dosage: UNK
  7. WATER PILLS [Concomitant]
     Dosage: UNK

REACTIONS (4)
  - ABDOMINAL DISCOMFORT [None]
  - CELLULITIS [None]
  - CONSTIPATION [None]
  - SLUGGISHNESS [None]
